FAERS Safety Report 5809760-6 (Version None)
Quarter: 2008Q3

REPORT INFORMATION
  Report Type: 
  Country: None (occurrence: None)
  Receive Date: 20080715
  Receipt Date: 20080709
  Transmission Date: 20090109
  Serious: Yes (Hospitalization)
  Sender: FDA-Public Use
  Company Number: US-AVENTIS-200815002GDDC

PATIENT
  Age: 78 Year
  Sex: Male

DRUGS (12)
  1. DOCETAXEL [Suspect]
     Indication: PROSTATE CANCER
     Route: 042
     Dates: start: 20080429, end: 20080429
  2. MONOCLONAL ANTIBODIES [Suspect]
     Indication: PROSTATE CANCER
     Route: 042
     Dates: start: 20080318, end: 20080429
  3. PREDNISONE TAB [Suspect]
     Indication: PROSTATE CANCER
     Route: 048
     Dates: start: 20080318, end: 20080328
  4. VICODIN [Concomitant]
     Dosage: DOSE: 5/500 MG EVERY 4 HOURS
     Route: 048
     Dates: start: 20080110
  5. ZOLADEX [Concomitant]
     Route: 058
     Dates: start: 20080318
  6. ZOFRAN [Concomitant]
     Dosage: DOSE: 8 MG EVERY 8 HOURS
     Route: 048
     Dates: start: 20080318
  7. TOPROL-XL [Concomitant]
     Route: 048
  8. MELOXICAM [Concomitant]
     Route: 048
     Dates: start: 20070501
  9. GLUCOSAMINE [Concomitant]
     Route: 048
     Dates: start: 20070501
  10. FOSAMAX [Concomitant]
     Route: 048
  11. LIPITOR [Concomitant]
     Route: 048
  12. GLIPIZIDE [Concomitant]
     Route: 048

REACTIONS (6)
  - CHEST PAIN [None]
  - DYSPNOEA [None]
  - HYPERGLYCAEMIA [None]
  - LEUKOPENIA [None]
  - PALPITATIONS [None]
  - TROPONIN I [None]
